FAERS Safety Report 4803620-5 (Version None)
Quarter: 2005Q4

REPORT INFORMATION
  Report Type: 
  Country: None (occurrence: None)
  Receive Date: 20051011
  Receipt Date: 20050901
  Transmission Date: 20060501
  Serious: Yes (Death)
  Sender: FDA-Public Use
  Company Number: 05P-163-0306212-00

PATIENT
  Age: 85 Year
  Sex: Female

DRUGS (6)
  1. DEPAKOTE [Suspect]
     Indication: AFFECTIVE DISORDER
     Dosage: 125 MG, 1 IN 1 D
  2. BUPROPION HYDROCHLORIDE [Concomitant]
  3. DONEPEZIL HYDROCHLORIDE [Concomitant]
  4. NAMENDA [Concomitant]
  5. RISPERIDONE [Concomitant]
  6. LEXAPRO [Concomitant]

REACTIONS (1)
  - DEATH [None]
